FAERS Safety Report 4688418-3 (Version None)
Quarter: 2005Q2

REPORT INFORMATION
  Report Type: 
  Country: None (occurrence: None)
  Receive Date: 20050609
  Receipt Date: 20050530
  Transmission Date: 20051028
  Serious: Yes (Death)
  Sender: FDA-Public Use
  Company Number: 2005081910

PATIENT
  Age: 60 Year
  Sex: Male

DRUGS (8)
  1. XANOR (ALPRAZOLAM) [Suspect]
     Indication: ILL-DEFINED DISORDER
     Dosage: (1 MG), ORAL
     Route: 048
  2. ZOPICLONE (ZOPICLONE) [Suspect]
     Indication: ILL-DEFINED DISORDER
     Dosage: (5 MG), ORAL
     Route: 048
  3. NOZINAM (LEVOMEPROMAZINE) [Suspect]
     Indication: ILL-DEFINED DISORDER
     Dosage: (25 MG), ORAL
     Route: 048
  4. KLIOGEST(ESTRADIOL, NORETHISTERONE ACETATE) [Suspect]
     Indication: MENOPAUSAL SYMPTOMS
     Dosage: (25 MG), ORAL
     Route: 048
     Dates: start: 19990914, end: 20050125
  5. HERMOLEPSING (CARBAMAZEPINE) [Suspect]
     Indication: ILL-DEFINED DISORDER
     Dosage: (200 MG), ORAL
     Route: 048
     Dates: start: 20010226, end: 20050125
  6. REMERON [Suspect]
     Indication: ILL-DEFINED DISORDER
  7. SPIRIVA (CALAMINE, CAMPHOR, DIPHENHYDRMAINE) [Concomitant]
  8. BUVENTOL (SALBUTAMOL SULFATE) [Concomitant]

REACTIONS (4)
  - ATHEROSCLEROSIS [None]
  - EMBOLISM [None]
  - PHLEBOTHROMBOSIS [None]
  - RENAL ONCOCYTOMA [None]
